FAERS Safety Report 5622380-1 (Version None)
Quarter: 2008Q1

REPORT INFORMATION
  Report Type: 
  Country: None (occurrence: None)
  Receive Date: 20080211
  Receipt Date: 20080129
  Transmission Date: 20080703
  Serious: Yes (Hospitalization, Disabling, Other)
  Sender: FDA-Public Use
  Company Number: FR-GENENTECH-250241

PATIENT
  Age: 52 Year
  Sex: Female

DRUGS (6)
  1. MABTHERA [Suspect]
     Indication: SYSTEMIC LUPUS ERYTHEMATOSUS
     Dosage: 1 G, UNK
     Dates: start: 20070206, end: 20070221
  2. CELLCEPT [Suspect]
     Indication: SYSTEMIC LUPUS ERYTHEMATOSUS
     Dosage: 2140 MG, UNK
     Route: 048
     Dates: start: 20070801
  3. CELLCEPT [Suspect]
     Indication: GLOMERULONEPHRITIS
  4. CELLCEPT [Suspect]
     Indication: RENAL FAILURE
  5. CORTANCYL [Suspect]
     Indication: SYSTEMIC LUPUS ERYTHEMATOSUS
     Dates: start: 20061201
  6. ENDOXAN [Suspect]
     Indication: SYSTEMIC LUPUS ERYTHEMATOSUS
     Dosage: 1 G, Q6M
     Route: 042
     Dates: start: 20070115, end: 20070805

REACTIONS (1)
  - CEREBRAL TOXOPLASMOSIS [None]
